FAERS Safety Report 19152190 (Version 1)
Quarter: 2021Q2

REPORT INFORMATION
  Report Type: Spontaneous
  Country: US (occurrence: US)
  Receive Date: 20210419
  Receipt Date: 20210419
  Transmission Date: 20210717
  Serious: No
  Sender: FDA-Public Use
  Company Number: US-SA-2021SA126508

PATIENT
  Sex: Male
  Weight: 83.9 kg

DRUGS (14)
  1. BREO ELLIPTA [Concomitant]
     Active Substance: FLUTICASONE FUROATE\VILANTEROL TRIFENATATE
  2. TYLENOL [Concomitant]
     Active Substance: ACETAMINOPHEN
  3. NORMAL SALINE [Concomitant]
     Active Substance: SODIUM CHLORIDE
  4. CETIRIZINE [Concomitant]
     Active Substance: CETIRIZINE HYDROCHLORIDE
  5. IBUPROFEN. [Concomitant]
     Active Substance: IBUPROFEN
  6. CEREZYME [Suspect]
     Active Substance: IMIGLUCERASE
     Indication: LIPID METABOLISM DISORDER
  7. PROTEIN [Concomitant]
     Active Substance: PROTEIN
  8. CEREZYME [Suspect]
     Active Substance: IMIGLUCERASE
     Indication: GAUCHER^S DISEASE
     Dosage: 1600 U, QOW
     Route: 041
     Dates: start: 20100324
  9. LIDOCAINE. [Concomitant]
     Active Substance: LIDOCAINE
  10. EPINEPHRINE. [Concomitant]
     Active Substance: EPINEPHRINE
  11. FISH OIL [Concomitant]
     Active Substance: FISH OIL
  12. ST. JOHN^S WORT [Concomitant]
     Active Substance: ST. JOHN^S WORT
  13. STERILE WATER [Concomitant]
     Active Substance: WATER
  14. BOMINE [BROMPHENIRAMINE MALEATE] [Concomitant]

REACTIONS (1)
  - Pain [Unknown]
